FAERS Safety Report 5697064-4 (Version None)
Quarter: 2008Q2

REPORT INFORMATION
  Report Type: 
  Country: None (occurrence: None)
  Receive Date: 20080408
  Receipt Date: 20070608
  Transmission Date: 20081010
  Serious: Yes (Other)
  Sender: FDA-Public Use
  Company Number: US-BAYER-US-2007-013155

PATIENT
  Age: 26 Year
  Sex: Female
  Weight: 73 kg

DRUGS (3)
  1. YASMIN [Suspect]
     Indication: ORAL CONTRACEPTION
     Route: 048
     Dates: start: 20060101
  2. MIRALAX [Concomitant]
  3. ZADITOR [Concomitant]
     Indication: MULTIPLE ALLERGIES
     Dosage: UNIT DOSE: 1 GTT
     Route: 047
     Dates: start: 20070315, end: 20070415

REACTIONS (2)
  - EOSINOPHIL COUNT DECREASED [None]
  - FATIGUE [None]
